FAERS Safety Report 7572848-6 (Version None)
Quarter: 2011Q2

REPORT INFORMATION
  Report Type: 
  Country: None (occurrence: None)
  Receive Date: 20110627
  Receipt Date: 20100728
  Transmission Date: 20111010
  Serious: No
  Sender: FDA-Public Use
  Company Number: US-PFIZER INC-US-WYE-H16638410

PATIENT
  Sex: Male

DRUGS (6)
  1. ADVIL LIQUI-GELS [Suspect]
  2. VALSARTAN [Suspect]
  3. AVANDIA [Suspect]
  4. ACTOS [Suspect]
  5. TRICOR [Suspect]
  6. METFORMIN HCL [Suspect]

REACTIONS (1)
  - CONSTIPATION [None]
